FAERS Safety Report 23051427 (Version 2)
Quarter: 2023Q4

REPORT INFORMATION
  Report Type: Report from Study
  Country: KR (occurrence: None)
  Receive Date: 20231010
  Receipt Date: 20231017
  Transmission Date: 20240110
  Serious: Yes (Death)
  Sender: FDA-Public Use
  Company Number: KR-ROCHE-3434266

PATIENT
  Age: 83 Year
  Sex: Male

DRUGS (11)
  1. GLOFITAMAB [Suspect]
     Active Substance: GLOFITAMAB
     Indication: Diffuse large B-cell lymphoma
     Dosage: DATE OF LAST DOSE (10 MG) PRIOR TO SAE ONSET 14/SEP/2023.?LAST DOSE WAS ALSO 30 MG.
     Route: 042
     Dates: start: 20230717
  2. POSELTINIB [Suspect]
     Active Substance: POSELTINIB
     Indication: Diffuse large B-cell lymphoma
     Dosage: ON 01/OCT/2023, PATIENT RECEIVED LAST DOSE PRIOR TO SERIOUS ADVERSE EVENT.
     Route: 048
     Dates: start: 20230710
  3. LENALIDOMIDE [Suspect]
     Active Substance: LENALIDOMIDE
     Indication: Diffuse large B-cell lymphoma
     Dosage: ON 27/SEP/2023, PATIENT LAST DOSE (15 MG) PRIOR TO SERIOUS ADVERSE EVENT.
     Route: 048
     Dates: start: 20230710
  4. ATACAND [Concomitant]
     Active Substance: CANDESARTAN CILEXETIL
     Dates: start: 20231001
  5. DIABEX [Concomitant]
     Active Substance: METFORMIN HYDROCHLORIDE
     Dates: start: 20231001
  6. ASPIRIN [Concomitant]
     Active Substance: ASPIRIN
     Dates: start: 20230710
  7. VEMLIDY [Concomitant]
     Active Substance: TENOFOVIR ALAFENAMIDE FUMARATE
     Dates: start: 20230711
  8. ALLOPURINOL [Concomitant]
     Active Substance: ALLOPURINOL
     Dates: start: 20230710
  9. SOLONDO (SOUTH KOREA) [Concomitant]
     Dates: start: 20230907
  10. VESICARE [Concomitant]
     Active Substance: SOLIFENACIN SUCCINATE
     Dates: start: 20230810
  11. LEVOPRIDE (SOUTH KOREA) [Concomitant]
     Dates: start: 20230831

REACTIONS (2)
  - Pneumonia [Fatal]
  - Septic shock [Fatal]

NARRATIVE: CASE EVENT DATE: 20231002
